FAERS Safety Report 8336270 (Version 4)
Quarter: 2012Q4

REPORT INFORMATION
  Report Type: 
  Country: US (occurrence: US)
  Receive Date: 20120113
  Receipt Date: 20121108
  Transmission Date: 20130627
  Serious: Yes (Hospitalization)
  Sender: FDA-Public Use
  Company Number: US-ASTRAZENECA-2011SE57607

PATIENT
  Age: 39 Year
  Sex: Female
  Weight: 111.1 kg

DRUGS (39)
  1. PRILOSEC [Suspect]
     Indication: GASTROOESOPHAGEAL REFLUX DISEASE
     Route: 048
  2. PRILOSEC [Suspect]
     Indication: GASTRIC DISORDER
     Route: 048
  3. PRILOSEC [Suspect]
     Indication: GASTROOESOPHAGEAL REFLUX DISEASE
     Dosage: 20 MG OR 40 MG ONCE IN THE MORNING
     Route: 048
  4. PRILOSEC [Suspect]
     Indication: GASTRIC DISORDER
     Dosage: 20 MG OR 40 MG ONCE IN THE MORNING
     Route: 048
  5. PRILOSEC [Suspect]
     Indication: GASTROOESOPHAGEAL REFLUX DISEASE
     Dosage: GENERIC
     Route: 048
  6. PRILOSEC [Suspect]
     Indication: GASTRIC DISORDER
     Dosage: GENERIC
     Route: 048
  7. SEROQUEL XR [Suspect]
     Indication: ANXIETY
     Route: 048
  8. SEROQUEL XR [Suspect]
     Indication: DEPRESSION
     Route: 048
  9. SEROQUEL XR [Suspect]
     Indication: BIPOLAR DISORDER
     Route: 048
  10. SEROQUEL XR [Suspect]
     Indication: AFFECTIVE DISORDER
     Route: 048
  11. SEROQUEL XR [Suspect]
     Indication: ANXIETY
     Route: 048
     Dates: start: 2008
  12. SEROQUEL XR [Suspect]
     Indication: DEPRESSION
     Route: 048
     Dates: start: 2008
  13. SEROQUEL XR [Suspect]
     Indication: BIPOLAR DISORDER
     Route: 048
     Dates: start: 2008
  14. SEROQUEL XR [Suspect]
     Indication: AFFECTIVE DISORDER
     Route: 048
     Dates: start: 2008
  15. SEROQUEL XR [Suspect]
     Indication: ANXIETY
     Route: 048
  16. SEROQUEL XR [Suspect]
     Indication: DEPRESSION
     Route: 048
  17. SEROQUEL XR [Suspect]
     Indication: BIPOLAR DISORDER
     Route: 048
  18. SEROQUEL XR [Suspect]
     Indication: AFFECTIVE DISORDER
     Route: 048
  19. SUDAFED [Suspect]
  20. CYMBALTA [Concomitant]
     Indication: DEPRESSION
  21. VALIUM [Concomitant]
     Indication: ANXIETY
     Route: 048
  22. TRICOR [Concomitant]
     Indication: BLOOD TRIGLYCERIDES ABNORMAL
     Dosage: 145 DAILY
     Route: 048
  23. PRIMADONE [Concomitant]
     Indication: TREMOR
  24. ATARAX [Concomitant]
     Indication: ANXIETY
     Dosage: TAKES TWO, BID
     Route: 048
  25. TRAZODONE [Concomitant]
     Indication: ANTIDEPRESSANT THERAPY
     Route: 048
  26. TRAZODONE [Concomitant]
     Indication: SLEEP DISORDER
     Route: 048
  27. TRAZODONE [Concomitant]
     Indication: ANTIDEPRESSANT THERAPY
     Route: 048
     Dates: start: 2012
  28. TRAZODONE [Concomitant]
     Indication: SLEEP DISORDER
     Route: 048
     Dates: start: 2012
  29. LOVAZAR [Concomitant]
     Indication: BLOOD CHOLESTEROL ABNORMAL
  30. ZOCOR [Concomitant]
     Indication: BLOOD CHOLESTEROL ABNORMAL
     Route: 048
  31. LIBRAX [Concomitant]
     Indication: GASTRIC DISORDER
     Dosage: AS REQUIRED BID
  32. LIBRAX [Concomitant]
     Indication: IRRITABLE BOWEL SYNDROME
     Dosage: AS REQUIRED BID
  33. ROBITUSSIN CF [Concomitant]
  34. ZOLOFT [Concomitant]
     Indication: ANXIETY
     Route: 048
     Dates: start: 2012
  35. ZOLOFT [Concomitant]
     Indication: DEPRESSION
     Route: 048
     Dates: start: 2012
  36. IMDUROL [Concomitant]
     Indication: ANXIETY
  37. ULTRACET [Concomitant]
  38. INDERAL [Concomitant]
     Indication: ANXIETY
     Dates: start: 2012
  39. MYSOLINE [Concomitant]
     Indication: ESSENTIAL TREMOR
     Route: 048
     Dates: start: 2003

REACTIONS (26)
  - Pancreatitis [Unknown]
  - Suicidal behaviour [Unknown]
  - Blood cholesterol increased [Unknown]
  - Blood triglycerides increased [Unknown]
  - Nasopharyngitis [Unknown]
  - Cough [Unknown]
  - Anxiety [Unknown]
  - Tachyphrenia [Unknown]
  - Anxiety [Unknown]
  - Gastroenteritis viral [Unknown]
  - Sinusitis [Unknown]
  - Nasal discomfort [Unknown]
  - Musculoskeletal stiffness [Unknown]
  - Neck pain [Unknown]
  - Toothache [Unknown]
  - Migraine [Unknown]
  - Sinus headache [Unknown]
  - Paronychia [Unknown]
  - Irritable bowel syndrome [Unknown]
  - Agoraphobia [Unknown]
  - Hydrophobia [Unknown]
  - Tooth disorder [Unknown]
  - Dry mouth [Unknown]
  - Somnolence [Unknown]
  - Somnolence [Unknown]
  - Drug ineffective for unapproved indication [Unknown]
